FAERS Safety Report 5680111-3 (Version None)
Quarter: 2008Q1

REPORT INFORMATION
  Report Type: 
  Country: None (occurrence: None)
  Receive Date: 20080326
  Receipt Date: 20080320
  Transmission Date: 20080703
  Serious: Yes (Death)
  Sender: FDA-Public Use
  Company Number: US-AVENTIS-200812044GDDC

PATIENT
  Age: 71 Year
  Sex: Male
  Weight: 77.1 kg

DRUGS (3)
  1. DOCETAXEL [Suspect]
     Indication: GASTRIC CANCER
     Route: 042
     Dates: start: 20080227, end: 20080227
  2. OXALIPLATIN [Suspect]
     Indication: GASTRIC CANCER
     Route: 042
     Dates: start: 20080227, end: 20080227
  3. CAPECITABINE [Suspect]
     Indication: GASTRIC CANCER
     Route: 048
     Dates: start: 20080207, end: 20080229

REACTIONS (2)
  - BLOOD PRESSURE DECREASED [None]
  - INTESTINAL PERFORATION [None]
